FAERS Safety Report 8506299-4 (Version None)
Quarter: 2012Q3

REPORT INFORMATION
  Report Type: 
  Country: None (occurrence: None)
  Receive Date: 20120705
  Receipt Date: 20120705
  Transmission Date: 20120928
  Serious: Yes (Hospitalization)
  Sender: FDA-Public Use
  Company Number: None

PATIENT
  Age: 36 Year
  Sex: Male
  Weight: 97.5234 kg

DRUGS (1)
  1. EXCEDRIN EXTRA STRENGTH NOVARTIS CONSUMER HEALTH [Suspect]
     Indication: MIGRAINE
     Dosage: 2
     Dates: start: 20120424, end: 20120424

REACTIONS (3)
  - PRODUCT QUALITY ISSUE [None]
  - BLOOD PRESSURE INCREASED [None]
  - PALPITATIONS [None]
